FAERS Safety Report 8972112 (Version 1)
Quarter: 2012Q4

REPORT INFORMATION
  Report Type: 
  Country: US (occurrence: US)
  Receive Date: 20121219
  Receipt Date: 20121219
  Transmission Date: 20130627
  Serious: Yes (Other)
  Sender: FDA-Public Use
  Company Number: US-ELI_LILLY_AND_COMPANY-US201212003040

PATIENT
  Sex: Female

DRUGS (7)
  1. HUMALOG LISPRO [Suspect]
     Dosage: UNK
  2. LANTUS [Concomitant]
     Dosage: 40 u, qd
     Route: 058
     Dates: start: 2002
  3. LANTUS [Concomitant]
     Dosage: 120 u, qd
     Route: 058
  4. LANTUS [Concomitant]
     Dosage: 90 u, bid
     Route: 058
  5. LANTUS [Concomitant]
     Dosage: 55 u, bid
     Route: 058
  6. ACTOS                                   /USA/ [Concomitant]
  7. OXYGEN [Concomitant]
     Dosage: UNK

REACTIONS (4)
  - Cardiac failure congestive [Unknown]
  - Lung disorder [Unknown]
  - Blood glucose increased [Unknown]
  - Blood glucose decreased [Unknown]
